FAERS Safety Report 25993871 (Version 1)
Quarter: 2025Q4

REPORT INFORMATION
  Report Type: Report from Study
  Country: EU (occurrence: EU)
  Receive Date: 20251104
  Receipt Date: 20251104
  Transmission Date: 20260118
  Serious: Yes (Life-Threatening, Other)
  Sender: AUROBINDO
  Company Number: EU-AUROBINDO-AUR-APL-2025-055147

PATIENT
  Sex: Female
  Weight: 2.54 kg

DRUGS (7)
  1. CARBOPLATIN [Suspect]
     Active Substance: CARBOPLATIN
     Indication: Neuroblastoma
     Dosage: 4.4 MILLIGRAM/KILOGRAM, DAYS 1-2 (COURSE 2)
     Route: 065
  2. CARBOPLATIN [Suspect]
     Active Substance: CARBOPLATIN
     Dosage: 2.5 MILLIGRAM/KILOGRAM, ON DAY 3 (COURSE 2)
     Route: 065
  3. CARBOPLATIN [Suspect]
     Active Substance: CARBOPLATIN
     Dosage: 3.8 MILLIGRAM/KILOGRAM, DAYS 1-3 (COURSE 3)
     Route: 065
  4. VINCRISTINE [Suspect]
     Active Substance: VINCRISTINE
     Indication: Neuroblastoma
     Dosage: 0.03 MILLIGRAM/KILOGRAM (0.03 MG/KG DAY)
     Route: 065
  5. CYCLOPHOSPHAMIDE [Suspect]
     Active Substance: CYCLOPHOSPHAMIDE
     Indication: Neuroblastoma
     Dosage: 3.3 MILLIGRAM/KILOGRAM (3.3 MG/KG DAYS 1?3)
     Route: 065
  6. ETOPOSIDE [Suspect]
     Active Substance: ETOPOSIDE
     Indication: Neuroblastoma
     Dosage: 3.3 MILLIGRAM ( 3.3MG/KG DAYS 1-3) (COURSE 2)
     Route: 065
  7. ETOPOSIDE [Suspect]
     Active Substance: ETOPOSIDE
     Dosage: 3.3 MILLIGRAM ( 3.3MG/KG DAYS 1-3) (COURSE 3)
     Route: 065

REACTIONS (2)
  - Congenital aplasia [Recovered/Resolved]
  - Haematotoxicity [Recovered/Resolved]
